FAERS Safety Report 4933181-1 (Version None)
Quarter: 2006Q1

REPORT INFORMATION
  Report Type: 
  Country: None (occurrence: None)
  Receive Date: 20060306
  Receipt Date: 20050606
  Transmission Date: 20060701
  Serious: Yes (Death)
  Sender: FDA-Public Use
  Company Number: GB-MERCK-0506GBR00099

PATIENT
  Age: 75 Year
  Sex: Male

DRUGS (2)
  1. VIOXX [Suspect]
     Indication: PAIN
     Route: 048
     Dates: start: 20031101, end: 20031101
  2. VIOXX [Suspect]
     Route: 048
     Dates: start: 20031101, end: 20040301

REACTIONS (1)
  - CARDIAC FAILURE [None]
